FAERS Safety Report 15317562 (Version 2)
Quarter: 2018Q3

REPORT INFORMATION
  Report Type: Spontaneous
  Country: US (occurrence: US)
  Receive Date: 20180824
  Receipt Date: 20180927
  Transmission Date: 20181010
  Serious: Yes (Hospitalization)
  Sender: FDA-Public Use
  Company Number: US-SAOL THERAPEUTICS-2018SAO00961

PATIENT
  Age: 72 Year
  Sex: Female

DRUGS (2)
  1. LIORESAL [Suspect]
     Active Substance: BACLOFEN
     Dosage: 931.3 ?G, \DAY
     Route: 037
     Dates: start: 20180809
  2. LIORESAL [Suspect]
     Active Substance: BACLOFEN
     Dosage: 931.5 ?G, \DAY
     Route: 037
     Dates: start: 20180809

REACTIONS (4)
  - Confusional state [Not Recovered/Not Resolved]
  - Muscle spasticity [Unknown]
  - Complication associated with device [Not Recovered/Not Resolved]
  - Urinary tract infection [Not Recovered/Not Resolved]

NARRATIVE: CASE EVENT DATE: 20180809
